FAERS Safety Report 16089228 (Version 3)
Quarter: 2019Q4

REPORT INFORMATION
  Report Type: Spontaneous
  Country: JP (occurrence: JP)
  Receive Date: 20190319
  Receipt Date: 20191004
  Transmission Date: 20200122
  Serious: Yes (Hospitalization)
  Sender: FDA-Public Use
  Company Number: JP-JNJFOC-20170526593

PATIENT
  Age: 65 Year
  Sex: Male
  Weight: 64 kg

DRUGS (16)
  1. OLMETEC [Concomitant]
     Active Substance: OLMESARTAN MEDOXOMIL
     Route: 048
     Dates: start: 20160630, end: 20160817
  2. BAYASPIRIN [Concomitant]
     Active Substance: ASPIRIN
     Dosage: BEFORE 2009
     Route: 048
     Dates: start: 20110721, end: 20190107
  3. ARICEPT [Concomitant]
     Active Substance: DONEPEZIL HYDROCHLORIDE
     Dosage: BEFORE 2009
     Route: 048
     Dates: start: 20121004, end: 20190107
  4. LIPITOR [Concomitant]
     Active Substance: ATORVASTATIN CALCIUM
     Dosage: BEFORE 2009
     Route: 048
     Dates: start: 20100225, end: 20190107
  5. AMOBAN [Concomitant]
     Active Substance: ZOPICLONE
     Dosage: BEFORE 2009
     Route: 048
     Dates: start: 20150115, end: 20190107
  6. CANAGLIFLOZIN [Suspect]
     Active Substance: CANAGLIFLOZIN
     Indication: TYPE 2 DIABETES MELLITUS
     Route: 048
     Dates: start: 20160317, end: 20190107
  7. OLMETEC [Concomitant]
     Active Substance: OLMESARTAN MEDOXOMIL
     Dosage: BEFORE 2009
     Route: 048
     Dates: start: 20100408, end: 20160629
  8. METGLUCO [Concomitant]
     Active Substance: METFORMIN HYDROCHLORIDE
     Indication: TYPE 2 DIABETES MELLITUS
     Dosage: BEFORE 2009
     Route: 048
     Dates: start: 20110721, end: 20160629
  9. MEMARY [Concomitant]
     Active Substance: MEMANTINE HYDROCHLORIDE
     Dosage: BEFORE 2009
     Route: 048
     Dates: start: 20151112, end: 20190107
  10. NESINA [Concomitant]
     Active Substance: ALOGLIPTIN BENZOATE
     Indication: TYPE 2 DIABETES MELLITUS
     Dosage: BEFORE 2009
     Route: 048
     Dates: start: 20120426, end: 20160629
  11. TAKEPRON [Concomitant]
     Active Substance: LANSOPRAZOLE
     Indication: PROPHYLAXIS
     Dosage: BEFORE 2009
     Route: 048
     Dates: start: 20110721, end: 20190107
  12. EQUMET [Concomitant]
     Active Substance: METFORMIN HYDROCHLORIDE\VILDAGLIPTIN
     Indication: TYPE 2 DIABETES MELLITUS
     Route: 048
     Dates: start: 20160630, end: 20190107
  13. SEIBULE [Concomitant]
     Active Substance: MIGLITOL
     Indication: TYPE 2 DIABETES MELLITUS
     Dosage: BEFORE 2009
     Route: 048
     Dates: start: 20150709, end: 20161012
  14. SEIBULE [Concomitant]
     Active Substance: MIGLITOL
     Route: 048
     Dates: start: 20161013, end: 20190107
  15. YOKUKANSAN [Concomitant]
     Active Substance: HERBALS
     Route: 048
     Dates: start: 20170810, end: 20190107
  16. FERROUS SULFATE. [Concomitant]
     Active Substance: FERROUS SULFATE
     Route: 048
     Dates: start: 20161215, end: 20170823

REACTIONS (7)
  - Gastric cancer [Not Recovered/Not Resolved]
  - Herpes zoster [Recovered/Resolved]
  - Constipation [Recovering/Resolving]
  - Iron deficiency anaemia [Recovering/Resolving]
  - Anaemia [Unknown]
  - Rhinitis allergic [Recovering/Resolving]
  - Electrolyte imbalance [Recovering/Resolving]

NARRATIVE: CASE EVENT DATE: 201606
